FAERS Safety Report 13565732 (Version 1)
Quarter: 2017Q2

REPORT INFORMATION
  Report Type: Spontaneous
  Country: DE (occurrence: DE)
  Receive Date: 20170519
  Receipt Date: 20170519
  Transmission Date: 20170830
  Serious: Yes (Other)
  Sender: FDA-Public Use
  Company Number: DE-JNJFOC-20170509198

PATIENT
  Age: 28 Year
  Sex: Male
  Weight: 75 kg

DRUGS (2)
  1. REGAINE MAENNER SCHAUM [Suspect]
     Active Substance: MINOXIDIL
     Indication: ANDROGENETIC ALOPECIA
     Route: 061
     Dates: start: 20170101
  2. REGAINE MAENNER SCHAUM [Suspect]
     Active Substance: MINOXIDIL
     Route: 061

REACTIONS (3)
  - Angioedema [Unknown]
  - Local swelling [Unknown]
  - Pharyngeal oedema [Unknown]

NARRATIVE: CASE EVENT DATE: 20170415
